FAERS Safety Report 6779800-9 (Version None)
Quarter: 2010Q2

REPORT INFORMATION
  Report Type: 
  Country: None (occurrence: None)
  Receive Date: 20100618
  Receipt Date: 20100608
  Transmission Date: 20101027
  Serious: Yes (Other)
  Sender: FDA-Public Use
  Company Number: US-PFIZER INC-2010068538

PATIENT
  Sex: Male
  Weight: 166.89 kg

DRUGS (17)
  1. GABAPENTIN [Suspect]
     Indication: FIBROMYALGIA
     Dosage: 600 MG, 3X/DAY
     Route: 048
     Dates: start: 20091101, end: 20100501
  2. LYRICA [Suspect]
     Indication: FIBROMYALGIA
     Dosage: 75 MG, 2X/DAY
     Route: 048
     Dates: start: 20100501
  3. PREDNISONE [Suspect]
     Indication: CHEST DISCOMFORT
     Dosage: 10 MG, UNK
     Dates: start: 20100601, end: 20100601
  4. ALPRAZOLAM [Concomitant]
     Indication: SLEEP DISORDER
     Dosage: 0.25 MG, UNK
  5. ALPRAZOLAM [Concomitant]
     Indication: PSYCHOMOTOR HYPERACTIVITY
  6. ATENOLOL [Concomitant]
     Dosage: 50 MG, UNK
  7. LEVOTHYROXINE [Concomitant]
     Indication: THYROID DISORDER
     Dosage: 0.075 MG, UNK
  8. PANTOPRAZOLE [Concomitant]
     Indication: HYPERCHLORHYDRIA
     Dosage: 40 MG, UNK
  9. SUCRALFATE [Concomitant]
     Indication: GASTRIC DISORDER
     Dosage: 1 G, UNK
  10. FINASTERIDE [Concomitant]
     Indication: PROSTATIC DISORDER
     Dosage: 5 MG, UNK
  11. TERAZOSIN [Concomitant]
     Indication: PROSTATIC DISORDER
     Dosage: 10 MG, UNK
  12. HYDROCHLOROTHIAZIDE [Concomitant]
     Indication: FLUID IMBALANCE
     Dosage: 25 MG, UNK
  13. MOMETASONE [Concomitant]
     Indication: ASTHMA
     Dosage: 220 UG, UNK
  14. URSODIOL [Concomitant]
     Indication: CHOLELITHIASIS
     Dosage: 250 MG, UNK
  15. ACETYLSALICYLIC ACID [Concomitant]
     Indication: HYPERTENSION
     Dosage: 162 MG, DAILY
  16. CROMOGLICATE SODIUM [Concomitant]
     Dosage: 4 %, UNK
  17. ORLISTAT [Concomitant]
     Dosage: 60 MG, UNK

REACTIONS (9)
  - CHEST DISCOMFORT [None]
  - DRUG INEFFECTIVE [None]
  - DYSPHAGIA [None]
  - FEELING ABNORMAL [None]
  - HYPERTENSION [None]
  - INSOMNIA [None]
  - OEDEMA PERIPHERAL [None]
  - PSYCHOMOTOR HYPERACTIVITY [None]
  - WEIGHT INCREASED [None]
